FAERS Safety Report 4307155-8 (Version None)
Quarter: 2004Q1

REPORT INFORMATION
  Report Type: 
  Country: None (occurrence: None)
  Receive Date: 20040227
  Receipt Date: 20040216
  Transmission Date: 20041129
  Serious: Yes (Hospitalization)
  Sender: FDA-Public Use
  Company Number: PHFR2004GB01069

PATIENT
  Age: 65 Year
  Sex: Male

DRUGS (11)
  1. DICLOFENAC [Suspect]
     Indication: PAIN
     Dosage: 50 MG, TID
     Route: 048
     Dates: start: 20040113, end: 20040119
  2. PRIADEL [Concomitant]
     Dosage: 1 G NOCTE
     Route: 048
  3. PROCYCLIDINE [Concomitant]
     Dosage: 5 MG, TID
     Route: 048
  4. TEMAZEPAM [Concomitant]
     Dosage: 10 MG NOCTE
     Route: 048
  5. VALPROIC ACID [Concomitant]
     Dosage: 500 MG, TID
  6. ASPIRIN C [Concomitant]
     Dosage: 75 MG MANE
     Route: 048
  7. HALOPERIDOL [Concomitant]
     Dosage: 5MG 08:00 + 18:00 15 MG NOCTE
     Route: 048
  8. OMEPRAZOLE [Concomitant]
     Dosage: 20 MG MANE
     Route: 048
     Dates: start: 20040113
  9. BECLAZONE [Concomitant]
     Dosage: 2 OT, TID
  10. VENTOLIN                           /00139501/ [Concomitant]
  11. SENNA [Concomitant]
     Dosage: 2 NOCTE
     Route: 048

REACTIONS (11)
  - ANOREXIA [None]
  - BLOOD CREATININE INCREASED [None]
  - BLOOD SODIUM INCREASED [None]
  - BLOOD UREA INCREASED [None]
  - DRUG LEVEL INCREASED [None]
  - ELECTROLYTE IMBALANCE [None]
  - MALAISE [None]
  - NEUTROPHIL COUNT INCREASED [None]
  - SOMNOLENCE [None]
  - VOMITING [None]
  - WHITE BLOOD CELL COUNT INCREASED [None]
